FAERS Safety Report 5023605-6 (Version None)
Quarter: 2006Q2

REPORT INFORMATION
  Report Type: 
  Country: None (occurrence: None)
  Receive Date: 20060606
  Receipt Date: 20060525
  Transmission Date: 20061013
  Serious: Yes (Other)
  Sender: FDA-Public Use
  Company Number: HQWYE103319OCT05

PATIENT

DRUGS (2)
  1. PREMARIN [Suspect]
     Indication: CYSTITIS HAEMORRHAGIC
  2. CYCLOPHOSPHAMIDE [Concomitant]

REACTIONS (1)
  - HEPATIC STEATOSIS [None]
